FAERS Safety Report 6582958-8 (Version None)
Quarter: 2010Q1

REPORT INFORMATION
  Report Type: 
  Country: None (occurrence: None)
  Receive Date: 20100216
  Receipt Date: 20100203
  Transmission Date: 20100710
  Serious: Yes (Hospitalization)
  Sender: FDA-Public Use
  Company Number: ZA-ROCHE-630962

PATIENT
  Sex: Female
  Weight: 116.5 kg

DRUGS (13)
  1. TOCILIZUMAB [Suspect]
     Indication: RHEUMATOID ARTHRITIS
     Dosage: DOSAGE FORM: INFUSION. THERAPY TEMPORARILY INTERRUPTED.
     Route: 042
     Dates: start: 20061206, end: 20090331
  2. CORDARONE [Suspect]
     Indication: DRUG USE FOR UNKNOWN INDICATION
     Route: 065
     Dates: start: 20080401
  3. MELOXICAM [Concomitant]
     Dates: start: 19960101
  4. TRAMACET [Concomitant]
     Dates: start: 19960101
  5. PREDNISONE [Concomitant]
     Dates: start: 20060101
  6. FOLIC ACID [Concomitant]
     Dates: start: 19960101
  7. METHOTREXATE [Concomitant]
     Dates: start: 20041222
  8. ALENDRONATE SODIUM [Concomitant]
     Dosage: DRUG REPORTED AS ALENDRONATE
     Dates: start: 20060101
  9. AMLOC [Concomitant]
     Dates: start: 20070423
  10. APROVEL [Concomitant]
     Dates: start: 20070423
  11. WARFARIN SODIUM [Concomitant]
     Dates: start: 20070620
  12. DIGOXIN [Concomitant]
     Dates: start: 20070620
  13. DILATREND [Concomitant]
     Dates: start: 20070423

REACTIONS (1)
  - MYASTHENIA GRAVIS [None]
